FAERS Safety Report 8247956-7 (Version None)
Quarter: 2012Q1

REPORT INFORMATION
  Report Type: 
  Country: None (occurrence: None)
  Receive Date: 20120330
  Receipt Date: 20120326
  Transmission Date: 20120608
  Serious: Yes (Other)
  Sender: FDA-Public Use
  Company Number: US-PFIZER INC-2012077569

PATIENT
  Sex: Female
  Weight: 72.56 kg

DRUGS (5)
  1. PROZAC [Concomitant]
     Dosage: UNK
  2. EFFEXOR XR [Suspect]
     Indication: PAIN
     Dosage: UNK, 1X/DAY
     Route: 048
  3. EFFEXOR XR [Suspect]
     Dosage: 37.5 MG, 1X/DAY
     Route: 048
  4. EFFEXOR XR [Suspect]
     Dosage: 75 MG, 1X/DAY
     Route: 048
  5. VENTOLIN [Concomitant]
     Dosage: UNK

REACTIONS (3)
  - IMPAIRED WORK ABILITY [None]
  - DIZZINESS [None]
  - DRUG INEFFECTIVE [None]
